FAERS Safety Report 19239509 (Version 5)
Quarter: 2021Q3

REPORT INFORMATION
  Report Type: Spontaneous
  Country: US (occurrence: US)
  Receive Date: 20210510
  Receipt Date: 20210721
  Transmission Date: 20211014
  Serious: Yes (Hospitalization, Other)
  Sender: FDA-Public Use
  Company Number: US-PFIZER INC-2021488123

PATIENT
  Age: 66 Year
  Sex: Male

DRUGS (3)
  1. TOZINAMERAN. [Suspect]
     Active Substance: TOZINAMERAN
     Indication: COVID-19 IMMUNISATION
     Dosage: DOSE 3, SINGLE
     Dates: start: 20210421, end: 20210421
  2. INLYTA [Suspect]
     Active Substance: AXITINIB
     Dosage: 1 MG
     Dates: start: 20210410, end: 20210422
  3. INLYTA [Suspect]
     Active Substance: AXITINIB
     Dosage: UNK
     Dates: start: 20210517

REACTIONS (6)
  - Pyrexia [Recovered/Resolved]
  - Thrombosis [Unknown]
  - Off label use [Unknown]
  - Atrial fibrillation [Recovered/Resolved]
  - Extra dose administered [Unknown]
  - Fatigue [Recovered/Resolved]

NARRATIVE: CASE EVENT DATE: 20210421
